FAERS Safety Report 13015658 (Version 2)
Quarter: 2016Q4

REPORT INFORMATION
  Report Type: Spontaneous
  Country: US (occurrence: US)
  Receive Date: 20161212
  Receipt Date: 20161222
  Transmission Date: 20170207
  Serious: No
  Sender: FDA-Public Use
  Company Number: US-ALEXION PHARMACEUTICALS INC.-A201609493

PATIENT
  Sex: Female

DRUGS (2)
  1. FLU [Suspect]
     Active Substance: INFLUENZA VIRUS VACCINE
     Indication: IMMUNISATION
     Dosage: UNK
     Route: 042
     Dates: start: 20161109
  2. STRENSIQ [Suspect]
     Active Substance: ASFOTASE ALFA
     Indication: HYPOPHOSPHATASIA
     Route: 058

REACTIONS (3)
  - Blood pressure increased [Unknown]
  - Blood alkaline phosphatase increased [Unknown]
  - Palpitations [Unknown]

NARRATIVE: CASE EVENT DATE: 20161109
